FAERS Safety Report 9023147 (Version 1)
Quarter: 2013Q1

REPORT INFORMATION
  Report Type: Spontaneous
  Country: US (occurrence: US)
  Receive Date: 20130120
  Receipt Date: 20130120
  Transmission Date: 20140127
  Serious: No
  Sender: FDA-Public Use
  Company Number: US-ALLERGAN-1214845US

PATIENT
  Sex: Female

DRUGS (8)
  1. BOTOX COSMETIC [Suspect]
     Indication: SKIN WRINKLING
     Dosage: 3 UNITS, UNK
     Route: 030
     Dates: start: 20121020, end: 20121020
  2. BOTOX COSMETIC [Suspect]
     Indication: SKIN WRINKLING
     Dosage: 3 UNITS, UNK
     Route: 030
     Dates: start: 20121020, end: 20121020
  3. BOTOX COSMETIC [Suspect]
     Indication: MUSCLE DISORDER
     Dosage: 3 UNITS, UNK
     Route: 030
     Dates: start: 20121020, end: 20121020
  4. BOTOX COSMETIC [Suspect]
     Dosage: 3 UNITS, UNK
     Route: 030
     Dates: start: 20121020, end: 20121020
  5. BOTOX COSMETIC [Suspect]
     Dosage: 3 UNITS, UNK
     Route: 030
     Dates: start: 20121020, end: 20121020
  6. HYDROCHLOROTHIAZIDE [Concomitant]
     Indication: HYPERTENSION
     Dosage: 25 MG, QD
     Route: 048
  7. SODIUM BICARBONATE [Concomitant]
     Indication: PRODUCT USED FOR UNKNOWN INDICATION
  8. LIDOCAINE [Concomitant]
     Indication: PRODUCT USED FOR UNKNOWN INDICATION

REACTIONS (3)
  - Off label use [Unknown]
  - Injection site pain [Unknown]
  - Drug ineffective [Unknown]
